FAERS Safety Report 8377919-2 (Version None)
Quarter: 2012Q2

REPORT INFORMATION
  Report Type: 
  Country: None (occurrence: None)
  Receive Date: 20120522
  Receipt Date: 20120508
  Transmission Date: 20120825
  Serious: Yes (Hospitalization)
  Sender: FDA-Public Use
  Company Number: US-ELI_LILLY_AND_COMPANY-US201204005632

PATIENT
  Sex: Female
  Weight: 118.37 kg

DRUGS (12)
  1. MAXALT [Concomitant]
  2. REQUIP [Concomitant]
  3. LASIX [Concomitant]
  4. CYMBALTA [Suspect]
     Dosage: UNK, UNKNOWN
  5. ABILIFY [Concomitant]
  6. LOVENOX [Concomitant]
  7. ZOFEN                              /00109201/ [Concomitant]
  8. REGLAN [Concomitant]
  9. CYMBALTA [Suspect]
     Indication: DEPRESSION
     Dosage: 60 MG, QD
     Dates: end: 20120412
  10. MELATONIN [Concomitant]
  11. TRAMADOL HYDROCHLORIDE [Concomitant]
  12. KEPPRA [Concomitant]

REACTIONS (5)
  - DRUG WITHDRAWAL SYNDROME [None]
  - SMALL INTESTINAL OBSTRUCTION [None]
  - TACHYCARDIA [None]
  - HYPOTENSION [None]
  - ANAEMIA POSTOPERATIVE [None]
